FAERS Safety Report 22524515 (Version 1)
Quarter: 2023Q2

REPORT INFORMATION
  Report Type: Spontaneous
  Country: KR (occurrence: KR)
  Receive Date: 20230606
  Receipt Date: 20230606
  Transmission Date: 20230722
  Serious: Yes (Other)
  Sender: FDA-Public Use
  Company Number: KR-ORGANON-O2306KOR000218

PATIENT
  Age: 55 Year
  Sex: Female
  Weight: 63.9 kg

DRUGS (3)
  1. HYDROCHLOROTHIAZIDE\LOSARTAN POTASSIUM [Suspect]
     Active Substance: HYDROCHLOROTHIAZIDE\LOSARTAN POTASSIUM
     Dosage: UNK, FILM COATED TABLETS
     Route: 048
     Dates: start: 20190711
  2. CYTARABINE [Concomitant]
     Active Substance: CYTARABINE
     Dosage: UNK
     Dates: start: 20190711
  3. IDARUBICIN HYDROCHLORIDE [Concomitant]
     Active Substance: IDARUBICIN HYDROCHLORIDE
     Dosage: UNK, POWDER INJECTION FOR SOLUTION, ROUTE: VEIN
     Dates: start: 20190711, end: 20190713

REACTIONS (3)
  - Febrile neutropenia [Recovered/Resolved]
  - Nausea [Recovered/Resolved]
  - Pyrexia [Recovered/Resolved]

NARRATIVE: CASE EVENT DATE: 20190711
